FAERS Safety Report 16751805 (Version 2)
Quarter: 2019Q3

REPORT INFORMATION
  Report Type: Spontaneous
  Country: JP (occurrence: JP)
  Receive Date: 20190828
  Receipt Date: 20190930
  Transmission Date: 20191005
  Serious: Yes (Other)
  Sender: FDA-Public Use
  Company Number: JP-PFIZER INC-2019301244

PATIENT
  Age: 51 Year
  Sex: Female

DRUGS (17)
  1. LYRICA [Suspect]
     Active Substance: PREGABALIN
     Dosage: 75 MG, UNK
     Dates: start: 20161215, end: 20170522
  2. RIVOTRIL [Suspect]
     Active Substance: CLONAZEPAM
     Dosage: 2 MG, DAILY
     Route: 048
  3. LYRICA [Suspect]
     Active Substance: PREGABALIN
     Dosage: 0.5 DF, UNK
     Route: 048
  4. RIVOTRIL [Suspect]
     Active Substance: CLONAZEPAM
     Indication: PERIARTHRITIS
     Dosage: 1 MG, 1X/DAY
     Route: 048
     Dates: start: 20160530
  5. LYRICA [Suspect]
     Active Substance: PREGABALIN
     Dosage: 75 MG, UNK
     Dates: start: 20170523, end: 20180620
  6. RIVOTRIL [Suspect]
     Active Substance: CLONAZEPAM
     Dosage: 3 MG, 2X/DAY
     Route: 048
  7. LYRICA [Suspect]
     Active Substance: PREGABALIN
     Indication: PAIN IN EXTREMITY
     Dosage: 75 MG, 4X/DAY
     Route: 048
     Dates: start: 20160714, end: 20160815
  8. LYRICA [Suspect]
     Active Substance: PREGABALIN
     Dosage: UNK (50^(AS REPORTED, UNIT NOT PROVIDED)
     Route: 048
     Dates: start: 20180717
  9. RIVOTRIL [Suspect]
     Active Substance: CLONAZEPAM
     Dosage: 1 DF, UNK
     Route: 048
  10. LYRICA [Suspect]
     Active Substance: PREGABALIN
     Indication: MUSCULOSKELETAL PAIN
     Dosage: 25 MG, 2X/DAY
     Route: 048
     Dates: start: 20160616, end: 20160622
  11. LYRICA [Suspect]
     Active Substance: PREGABALIN
     Indication: PAIN
     Dosage: 75 MG, 3X/DAY
     Route: 048
     Dates: start: 20160816, end: 20160920
  12. LYRICA [Suspect]
     Active Substance: PREGABALIN
     Indication: PAIN IN EXTREMITY
     Dosage: 25 MG, 3X/DAY
     Route: 048
     Dates: start: 20160623, end: 20160705
  13. LYRICA [Suspect]
     Active Substance: PREGABALIN
     Indication: MUSCULOSKELETAL PAIN
     Dosage: 75 MG, 3X/DAY
     Route: 048
     Dates: start: 20160705, end: 20160712
  14. LYRICA [Suspect]
     Active Substance: PREGABALIN
     Dosage: UNK (25 OR 12.5^(AS REPORTED, UNIT NOT PROVIDED)
     Route: 048
     Dates: start: 20180621, end: 201807
  15. RIVOTRIL [Suspect]
     Active Substance: CLONAZEPAM
     Dosage: 1 MG, 2X/DAY
     Route: 048
  16. RIVOTRIL [Suspect]
     Active Substance: CLONAZEPAM
     Dosage: 1 MG, DAILY
     Route: 048
     Dates: end: 20180120
  17. RIVOTRIL [Suspect]
     Active Substance: CLONAZEPAM
     Dosage: 0.25 DF, UNK
     Route: 048
     Dates: end: 20180820

REACTIONS (7)
  - Product dose omission [Unknown]
  - Ocular vascular disorder [Unknown]
  - Hot flush [Not Recovered/Not Resolved]
  - Abdominal pain upper [Recovered/Resolved]
  - Presbyopia [Unknown]
  - Hypermetropia [Unknown]
  - Visual impairment [Unknown]

NARRATIVE: CASE EVENT DATE: 20170413
